FAERS Safety Report 6268525-4 (Version None)
Quarter: 2009Q3

REPORT INFORMATION
  Report Type: 
  Country: None (occurrence: None)
  Receive Date: 20090715
  Receipt Date: 20090703
  Transmission Date: 20100115
  Serious: Yes (Hospitalization)
  Sender: FDA-Public Use
  Company Number: FR-PFIZER INC-2009235764

PATIENT
  Age: 93 Year

DRUGS (2)
  1. TRIFLUCAN [Suspect]
     Indication: CANDIDIASIS
     Dosage: 100 MG, 2X/DAY
     Route: 048
     Dates: start: 20090410, end: 20090428
  2. PREVISCAN [Interacting]
     Dosage: UNK
     Route: 048
     Dates: end: 20090428

REACTIONS (2)
  - HAEMATOMA [None]
  - PROTHROMBIN TIME SHORTENED [None]
